FAERS Safety Report 18801635 (Version 3)
Quarter: 2021Q1

REPORT INFORMATION
  Report Type: Spontaneous
  Country: US (occurrence: US)
  Receive Date: 20210128
  Receipt Date: 20210205
  Transmission Date: 20210419
  Serious: No
  Sender: FDA-Public Use
  Company Number: US-PFIZER INC-2021035968

PATIENT
  Age: 44 Year
  Sex: Male

DRUGS (5)
  1. TORSEMIDE. [Concomitant]
     Active Substance: TORSEMIDE
     Dosage: 80 MG, 2X/DAY
  2. POTASSIUM [Concomitant]
     Active Substance: POTASSIUM
     Dosage: 60 MEQ, 3X/DAY
  3. INSPRA [Suspect]
     Active Substance: EPLERENONE
     Indication: CONGENITAL HEART VALVE DISORDER
     Dosage: 200 MG, 2X/DAY (4 TABS PO (PER ORAL) BID (TWICE A DAY))
     Route: 048
     Dates: start: 2019
  4. INSPRA [Suspect]
     Active Substance: EPLERENONE
     Indication: CARDIAC FAILURE
     Dosage: 200 MG, 2X/DAY (4 TABS PO (PER ORAL) BID (TWICE A DAY))
     Route: 048
     Dates: start: 20210107
  5. INSPRA [Suspect]
     Active Substance: EPLERENONE
     Indication: PROPHYLAXIS

REACTIONS (3)
  - Prescribed overdose [Unknown]
  - Dyspnoea [Unknown]
  - Fatigue [Unknown]
